FAERS Safety Report 9120976 (Version 2)
Quarter: 2013Q2

REPORT INFORMATION
  Report Type: Spontaneous
  Country: US (occurrence: US)
  Receive Date: 20130226
  Receipt Date: 20130403
  Transmission Date: 20140414
  Serious: Yes (Hospitalization, Other)
  Sender: FDA-Public Use
  Company Number: US-ALEXION PHARMACEUTICALS INC.-A201300249

PATIENT
  Age: 61 Year
  Sex: Male

DRUGS (1)
  1. SOLIRIS 300MG [Suspect]
     Indication: PAROXYSMAL NOCTURNAL HAEMOGLOBINURIA
     Dosage: 1200 MG, Q2W
     Route: 042

REACTIONS (10)
  - Dyspnoea [Unknown]
  - Muscular weakness [Unknown]
  - Gait disturbance [Unknown]
  - Haemoglobinuria [Unknown]
  - Haemoglobin decreased [Unknown]
  - Haemolysis [Unknown]
  - Fatigue [Unknown]
  - Sensation of heaviness [Unknown]
  - Chromaturia [Unknown]
  - Nasopharyngitis [Unknown]
